FAERS Safety Report 10011936 (Version 2)
Quarter: 2014Q2

REPORT INFORMATION
  Report Type: Spontaneous
  Country: US (occurrence: US)
  Receive Date: 20140314
  Receipt Date: 20140410
  Transmission Date: 20141212
  Serious: No
  Sender: FDA-Public Use
  Company Number: US-TEVA-468503USA

PATIENT
  Age: 33 Year
  Sex: Female
  Weight: 70.82 kg

DRUGS (1)
  1. PARAGARD 380A [Suspect]
     Indication: CONTRACEPTION
     Route: 015
     Dates: start: 201210, end: 20140311

REACTIONS (2)
  - Glucose tolerance test abnormal [Not Recovered/Not Resolved]
  - Smear cervix abnormal [Not Recovered/Not Resolved]
